FAERS Safety Report 8286746-6 (Version None)
Quarter: 2012Q2

REPORT INFORMATION
  Report Type: 
  Country: None (occurrence: None)
  Receive Date: 20120411
  Receipt Date: 20120329
  Transmission Date: 20120825
  Serious: Yes (Hospitalization, Other)
  Sender: FDA-Public Use
  Company Number: 2012P1011419

PATIENT
  Age: 26 Year
  Sex: Female
  Weight: 55.3388 kg

DRUGS (14)
  1. FENTANYL [Suspect]
     Indication: COMPLEX REGIONAL PAIN SYNDROME
     Dosage: 1 PATCH;Q72H;TDER
     Route: 062
     Dates: start: 20100101
  2. FENTANYL-100 [Suspect]
     Indication: COMPLEX REGIONAL PAIN SYNDROME
     Dosage: 1 PATCH;Q72H;TDER
     Route: 062
     Dates: start: 20100101
  3. CLARITHROMYCIN [Suspect]
     Indication: PNEUMONIA
     Dosage: 500 MG;BID;
     Dates: start: 20120301, end: 20120301
  4. NEURONTIN [Concomitant]
  5. BACLOFEN [Concomitant]
  6. NAPROXEN [Concomitant]
  7. LANSOPRAZOLE [Concomitant]
  8. DIAZEPAM 5MG/ML [Concomitant]
  9. METOCLOPRAMIDE [Concomitant]
  10. LOESTRIN 24 FE [Concomitant]
  11. LIDODERM [Concomitant]
  12. CLONIDINE [Concomitant]
  13. OXYCODONE HCL [Concomitant]
  14. MIRALAX 3350 [Concomitant]

REACTIONS (5)
  - HYPERHIDROSIS [None]
  - PNEUMONIA ASPIRATION [None]
  - COMPLEX REGIONAL PAIN SYNDROME [None]
  - DISEASE PROGRESSION [None]
  - FUNGAL INFECTION [None]
